FAERS Safety Report 8023157-2 (Version None)
Quarter: 2012Q1

REPORT INFORMATION
  Report Type: 
  Country: None (occurrence: None)
  Receive Date: 20120104
  Receipt Date: 20111227
  Transmission Date: 20120608
  Serious: Yes (Hospitalization, Other)
  Sender: FDA-Public Use
  Company Number: CN-BAXTER-2011BH033118

PATIENT
  Age: 55 Year
  Sex: Male
  Weight: 74 kg

DRUGS (2)
  1. ALBUMIN (HUMAN) [Suspect]
     Indication: OFF LABEL USE
     Route: 041
     Dates: start: 20111013, end: 20111013
  2. ALBUMIN (HUMAN) [Suspect]
     Indication: HEPATIC CIRRHOSIS
     Route: 041
     Dates: start: 20111013, end: 20111013

REACTIONS (3)
  - CHILLS [None]
  - ESCHERICHIA SEPSIS [None]
  - PYREXIA [None]
